FAERS Safety Report 4819822-8 (Version None)
Quarter: 2005Q4

REPORT INFORMATION
  Report Type: 
  Country: None (occurrence: None)
  Receive Date: 20051102
  Receipt Date: 20051031
  Transmission Date: 20060501
  Serious: Yes (Life-Threatening)
  Sender: FDA-Public Use
  Company Number: 217890

PATIENT
  Age: 63 Year
  Sex: Male
  Weight: 81 kg

DRUGS (11)
  1. RITUXIMAB(RITUXIMAB) CONC FOR SOLUTION FOR INFUSION [Suspect]
     Indication: CHRONIC LYMPHOCYTIC LEUKAEMIA
     Dosage: 500 MG/M2, PER PROTOCOL, INTRAVENOUS
     Route: 042
     Dates: start: 20041005
  2. FLUDARABINE PHOSPHATE [Suspect]
     Indication: CHRONIC LYMPHOCYTIC LEUKAEMIA
     Dosage: 25 MG/M2, PER PROTOCOL, INTRAVENOUS
     Route: 042
     Dates: start: 20041006
  3. CYCLOPHOSPHAMIDE [Suspect]
     Indication: CHRONIC LYMPHOCYTIC LEUKAEMIA
     Dosage: 250 MG/M2, PER PROTOCOL, INTRAVENOUS
     Route: 042
     Dates: start: 20041006
  4. CALCIUM DOBESILATE (CALCIUM DOBESILATE) [Concomitant]
  5. ALPRAZOLAM [Concomitant]
  6. ALLOPURINOL [Concomitant]
  7. PANTOPRAZOLE SODIUM [Concomitant]
  8. FOSINOPRIL (FOSINOPRIL SODIUM) [Concomitant]
  9. VINPOCETINE (VINPOCETINE) [Concomitant]
  10. METFORMIN HCL [Concomitant]
  11. GLICLAZIDE (GLICLAZIDE) [Concomitant]

REACTIONS (2)
  - GRANULOCYTOPENIA [None]
  - NEUTROPENIA [None]
